FAERS Safety Report 7435150-9 (Version None)
Quarter: 2011Q2

REPORT INFORMATION
  Report Type: 
  Country: None (occurrence: None)
  Receive Date: 20110425
  Receipt Date: 20110419
  Transmission Date: 20111010
  Serious: Yes (Death, Hospitalization, Other)
  Sender: FDA-Public Use
  Company Number: PHHY2010MX47062

PATIENT
  Sex: Male

DRUGS (1)
  1. EXFORGE [Suspect]
     Indication: HYPERTENSION
     Dosage: 160 MG VALS AND 5 MG AMLO (1 TABLET PER DAY)
     Route: 048
     Dates: start: 20100703, end: 20100705

REACTIONS (3)
  - CARDIAC ARREST [None]
  - RENAL FAILURE ACUTE [None]
  - HYPERTENSION [None]
